FAERS Safety Report 5005516-5 (Version None)
Quarter: 2006Q2

REPORT INFORMATION
  Report Type: 
  Country: None (occurrence: None)
  Receive Date: 20060515
  Receipt Date: 20060505
  Transmission Date: 20061013
  Serious: Yes (Other)
  Sender: FDA-Public Use
  Company Number: 2006038563

PATIENT
  Age: 16 Year
  Sex: Male

DRUGS (6)
  1. NEURONTIN [Suspect]
     Indication: AFFECTIVE DISORDER
     Dosage: 900 MG (300 MG, 3 IN 1 D), ORAL
     Route: 048
  2. GABAPENTIN [Suspect]
     Indication: ILL-DEFINED DISORDER
     Dosage: 300 MG
  3. ZOLOFT [Concomitant]
  4. ADDERALL XR (AMFETAMINE ASPARTATE, AMFETAMINE SULFATE, DEXAMFETAMINE S [Concomitant]
  5. LORATADINE [Concomitant]
  6. ANTI-ASTHMATICS (ANTI-ASTHMATICS) [Concomitant]

REACTIONS (2)
  - ASPIRATION [None]
  - WRONG TECHNIQUE IN DRUG USAGE PROCESS [None]
